FAERS Safety Report 8047296-5 (Version None)
Quarter: 2012Q1

REPORT INFORMATION
  Report Type: 
  Country: None (occurrence: None)
  Receive Date: 20120116
  Receipt Date: 20120105
  Transmission Date: 20120608
  Serious: Yes (Other)
  Sender: FDA-Public Use
  Company Number: US-BAYER-2012-001641

PATIENT
  Age: 37 Year
  Sex: Female

DRUGS (1)
  1. MIRENA [Suspect]
     Indication: CONTRACEPTION
     Dosage: 20 MCG/24HR, CONT
     Route: 015
     Dates: start: 20111229, end: 20111229

REACTIONS (10)
  - ABDOMINAL PAIN [None]
  - ABASIA [None]
  - CIRCULATORY COLLAPSE [None]
  - DEVICE DIFFICULT TO USE [None]
  - VOMITING [None]
  - NERVE INJURY [None]
  - HYPERVENTILATION [None]
  - DEVICE DAMAGE [None]
  - HYPOAESTHESIA [None]
  - BLOOD PRESSURE DECREASED [None]
